FAERS Safety Report 19700331 (Version 2)
Quarter: 2021Q3

REPORT INFORMATION
  Report Type: Report from Study
  Country: KR (occurrence: KR)
  Receive Date: 20210813
  Receipt Date: 20210831
  Transmission Date: 20211014
  Serious: Yes (Hospitalization)
  Sender: FDA-Public Use
  Company Number: KR-ROCHE-2879365

PATIENT
  Age: 37 Year
  Sex: Female
  Weight: 54.15 kg

DRUGS (11)
  1. TRASTUZUMAB. [Concomitant]
     Active Substance: TRASTUZUMAB
     Route: 065
     Dates: start: 20161205, end: 20170318
  2. DOCETAXEL. [Concomitant]
     Active Substance: DOCETAXEL
     Dates: start: 20161205, end: 20170318
  3. DOXORUBICIN HYDROCHLORIDE. [Concomitant]
     Active Substance: DOXORUBICIN HYDROCHLORIDE
     Dates: start: 20170502, end: 20170706
  4. CARBOPLATIN. [Concomitant]
     Active Substance: CARBOPLATIN
     Dates: start: 20161205, end: 20170318
  5. PANTOPRAZOLE [Concomitant]
     Active Substance: PANTOPRAZOLE
     Dates: start: 20210604
  6. TRASTUZUMAB EMTANSINE [Suspect]
     Active Substance: ADO-TRASTUZUMAB EMTANSINE
     Indication: BREAST CANCER METASTATIC
     Route: 042
     Dates: start: 20210128, end: 20210715
  7. BLINDED TUCATINIB/PLACEBO [Suspect]
     Active Substance: TUCATINIB
     Indication: BREAST CANCER METASTATIC
     Route: 048
     Dates: start: 20210128, end: 20210720
  8. TRASTUZUMAB. [Concomitant]
     Active Substance: TRASTUZUMAB
     Route: 065
     Dates: start: 20170728, end: 20180315
  9. CYCLOPHOSPHAMIDE. [Concomitant]
     Active Substance: CYCLOPHOSPHAMIDE
     Dates: start: 20170502, end: 20170706
  10. PERTUZUMAB. [Concomitant]
     Active Substance: PERTUZUMAB
     Dates: start: 20161204, end: 20170318
  11. CHLORPHENIRAMINE. [Concomitant]
     Active Substance: CHLORPHENIRAMINE
     Dates: start: 20210128, end: 20210715

REACTIONS (2)
  - Dyspnoea [Not Recovered/Not Resolved]
  - Right ventricular dysfunction [Recovered/Resolved]

NARRATIVE: CASE EVENT DATE: 20210720
